FAERS Safety Report 8887737 (Version 1)
Quarter: 2012Q4

REPORT INFORMATION
  Report Type: 
  Country: US (occurrence: US)
  Receive Date: 20121106
  Receipt Date: 20121106
  Transmission Date: 20130627
  Serious: No
  Sender: FDA-Public Use
  Company Number: US-ASTRAZENECA-2012SE28674

PATIENT
  Age: 81 Year
  Sex: Female

DRUGS (4)
  1. ATENOLOL [Suspect]
  2. CRESTOR [Suspect]
     Indication: BLOOD CHOLESTEROL
     Route: 048
  3. PLAVIX [Concomitant]
  4. GENERIC NORVASC [Concomitant]

REACTIONS (3)
  - Weight decreased [Unknown]
  - Arthralgia [Unknown]
  - Therapeutic response unexpected [Unknown]
